FAERS Safety Report 21460476 (Version 4)
Quarter: 2022Q4

REPORT INFORMATION
  Report Type: Report from Study
  Country: US (occurrence: US)
  Receive Date: 20221014
  Receipt Date: 20221115
  Transmission Date: 20230113
  Serious: Yes (Other)
  Sender: FDA-Public Use
  Company Number: US-ABBVIE-4145802

PATIENT
  Sex: Female

DRUGS (4)
  1. IMBRUVICA [Suspect]
     Active Substance: IBRUTINIB
     Indication: Chronic lymphocytic leukaemia
     Route: 048
     Dates: start: 20210304
  2. IMBRUVICA [Suspect]
     Active Substance: IBRUTINIB
     Indication: Chronic lymphocytic leukaemia
     Route: 048
     Dates: start: 20210304
  3. , MODERNA COVID-19 [Concomitant]
     Indication: COVID-19 immunisation
     Dosage: ONCE
     Route: 030
  4. MOTRIN [Suspect]
     Active Substance: IBUPROFEN
     Indication: Contusion
     Route: 065

REACTIONS (14)
  - Breast cancer [Unknown]
  - Fall [Not Recovered/Not Resolved]
  - Dysphagia [Unknown]
  - Haemorrhage [Not Recovered/Not Resolved]
  - Rash macular [Not Recovered/Not Resolved]
  - Eating disorder [Not Recovered/Not Resolved]
  - Contusion [Unknown]
  - Papule [Unknown]
  - Skin laceration [Unknown]
  - Lymphadenopathy [Unknown]
  - Pain [Unknown]
  - Decreased appetite [Unknown]
  - Adverse drug reaction [Unknown]
  - Diarrhoea [Unknown]

NARRATIVE: CASE EVENT DATE: 20220101
